FAERS Safety Report 7277329-5 (Version None)
Quarter: 2011Q1

REPORT INFORMATION
  Report Type: 
  Country: None (occurrence: None)
  Receive Date: 20110131
  Receipt Date: 20110120
  Transmission Date: 20110831
  Serious: Yes (Disabling)
  Sender: FDA-Public Use
  Company Number: 2011SP002699

PATIENT
  Age: 20 Year
  Sex: Female
  Weight: 57.2 kg

DRUGS (6)
  1. CITALOPRAM [Concomitant]
  2. MIRTAZAPINE [Suspect]
     Indication: PRODUCT USED FOR UNKNOWN INDICATION
     Dates: start: 20110114
  3. SERTRALINE [Concomitant]
  4. CODEINE SULFATE [Concomitant]
  5. NAPROXEN [Concomitant]
  6. PROPRANOLOL [Concomitant]

REACTIONS (2)
  - INTENTIONAL SELF-INJURY [None]
  - SUICIDAL IDEATION [None]
